FAERS Safety Report 7624634-6 (Version None)
Quarter: 2011Q3

REPORT INFORMATION
  Report Type: 
  Country: None (occurrence: None)
  Receive Date: 20110720
  Receipt Date: 20110630
  Transmission Date: 20111222
  Serious: Yes (Other)
  Sender: FDA-Public Use
  Company Number: PHHY2011BE60584

PATIENT
  Sex: Male

DRUGS (2)
  1. SINTROM [Suspect]
  2. GLEEVEC [Suspect]
     Indication: HYPEREOSINOPHILIC SYNDROME
     Dosage: 400 MG, UNK
     Dates: start: 20070601, end: 20090801

REACTIONS (3)
  - CARDIAC MURMUR [None]
  - LIGAMENT INJURY [None]
  - HAEMATOMA [None]
